FAERS Safety Report 8439757-1 (Version None)
Quarter: 2012Q2

REPORT INFORMATION
  Report Type: 
  Country: None (occurrence: None)
  Receive Date: 20120615
  Receipt Date: 20120611
  Transmission Date: 20120825
  Serious: Yes (Hospitalization)
  Sender: FDA-Public Use
  Company Number: FI-SANOFI-AVENTIS-2011SA076043

PATIENT
  Age: 72 Year
  Sex: Male
  Weight: 71 kg

DRUGS (6)
  1. TRIMOPAN [Concomitant]
  2. PREDNISOLONE [Suspect]
     Indication: PROSTATE CANCER METASTATIC
     Route: 048
     Dates: start: 20110329
  3. CABAZITAXEL [Suspect]
     Route: 042
     Dates: start: 20111110, end: 20111110
  4. CABAZITAXEL [Suspect]
     Indication: PROSTATE CANCER METASTATIC
     Route: 042
     Dates: start: 20110330, end: 20110330
  5. LEUPROLIDE ACETATE [Concomitant]
  6. TAMSULOSIN HCL [Concomitant]

REACTIONS (1)
  - SYNCOPE [None]
